FAERS Safety Report 23076409 (Version 1)
Quarter: 2023Q4

REPORT INFORMATION
  Report Type: Spontaneous
  Country: RU (occurrence: RU)
  Receive Date: 20231017
  Receipt Date: 20231017
  Transmission Date: 20240110
  Serious: Yes (Other)
  Sender: FDA-Public Use
  Company Number: RU-TEVA-2023-RU-2935057

PATIENT
  Age: 25 Year
  Sex: Male

DRUGS (1)
  1. AZITHROMYCIN [Suspect]
     Active Substance: AZITHROMYCIN
     Indication: Oral infection
     Dosage: FORM STRENGTH AND UNIT DOSE: 500MILLIGRAM
     Route: 065

REACTIONS (2)
  - Chromaturia [Unknown]
  - Diarrhoea [Unknown]
